FAERS Safety Report 13565299 (Version 2)
Quarter: 2017Q3

REPORT INFORMATION
  Report Type: Spontaneous
  Country: US (occurrence: JP)
  Receive Date: 20170519
  Receipt Date: 20170705
  Transmission Date: 20171127
  Serious: Yes (Death, Other)
  Sender: FDA-Public Use
  Company Number: US-SUNOVION-2017SUN002088

PATIENT
  Age: 75 Year
  Sex: Male

DRUGS (2)
  1. GLYCOPYRROLATE. [Suspect]
     Active Substance: GLYCOPYRROLATE
     Indication: CHRONIC OBSTRUCTIVE PULMONARY DISEASE
     Dosage: (GLYCOPYRRONIUM BROMIDE) CAPSULE, 50 ?G, QD
     Route: 055
  2. INDACATEROL [Suspect]
     Active Substance: INDACATEROL
     Indication: CHRONIC OBSTRUCTIVE PULMONARY DISEASE
     Dosage: ONBREZ INHALATION CAPSULE (INDACATEROL) DRY POWDER INHALER;
     Route: 055

REACTIONS (3)
  - Pancreatic carcinoma [Fatal]
  - Abdominal pain upper [Unknown]
  - Urinary retention [Unknown]

NARRATIVE: CASE EVENT DATE: 201606
